FAERS Safety Report 25283353 (Version 1)
Quarter: 2025Q2

REPORT INFORMATION
  Report Type: Spontaneous
  Country: CN (occurrence: CN)
  Receive Date: 20250508
  Receipt Date: 20250508
  Transmission Date: 20250716
  Serious: Yes (Other)
  Sender: PFIZER
  Company Number: CN-PFIZER INC-202500094836

PATIENT
  Age: 75 Year
  Sex: Female

DRUGS (2)
  1. INLYTA [Suspect]
     Active Substance: AXITINIB
     Indication: Clear cell renal cell carcinoma
     Dosage: 5 MG, 2X/DAY
     Route: 048
     Dates: start: 2021
  2. INLYTA [Suspect]
     Active Substance: AXITINIB
     Dosage: 5 MG, 1X/DAY
     Route: 048

REACTIONS (6)
  - Hypertensive crisis [Not Recovered/Not Resolved]
  - Metastases to bone [Unknown]
  - Clear cell renal cell carcinoma [Unknown]
  - Pulmonary mass [Unknown]
  - Renal mass [Unknown]
  - Headache [Unknown]
